FAERS Safety Report 18039556 (Version 2)
Quarter: 2020Q4

REPORT INFORMATION
  Report Type: Spontaneous
  Country: US (occurrence: US)
  Receive Date: 20200717
  Receipt Date: 20201211
  Transmission Date: 20210113
  Serious: Yes (Other)
  Sender: FDA-Public Use
  Company Number: US-TEVA-2020-US-1803201

PATIENT
  Sex: Male

DRUGS (8)
  1. VALSARTAN CAMBER [Suspect]
     Active Substance: VALSARTAN
     Route: 065
     Dates: start: 20151118, end: 20151218
  2. VALSARTAN AUROBINDO [Suspect]
     Active Substance: VALSARTAN
     Indication: HYPERTENSION
     Route: 065
     Dates: start: 20180510, end: 20181103
  3. VALSARTAN CAMBER [Suspect]
     Active Substance: VALSARTAN
     Indication: HYPERTENSION
     Route: 065
     Dates: start: 20150720, end: 20151023
  4. DIOVAN [Suspect]
     Active Substance: VALSARTAN
     Indication: HYPERTENSION
     Route: 065
  5. VALSARTAN OHMS [Suspect]
     Active Substance: VALSARTAN
     Indication: HYPERTENSION
     Route: 065
     Dates: start: 20160428, end: 20160528
  6. VALSARTAN CAMBER [Suspect]
     Active Substance: VALSARTAN
     Route: 065
     Dates: start: 20151024, end: 20151116
  7. VALSARTAN SANDOZ [Suspect]
     Active Substance: VALSARTAN
     Indication: HYPERTENSION
     Route: 065
     Dates: start: 20150331, end: 20150430
  8. VALSARTAN OHMS [Suspect]
     Active Substance: VALSARTAN
     Route: 065
     Dates: start: 20170418, end: 20170518

REACTIONS (1)
  - Colon cancer [Unknown]
